FAERS Safety Report 14128889 (Version 2)
Quarter: 2018Q1

REPORT INFORMATION
  Report Type: Spontaneous
  Country: US (occurrence: US)
  Receive Date: 20171026
  Receipt Date: 20180201
  Transmission Date: 20180508
  Serious: Yes (Hospitalization, Other)
  Sender: FDA-Public Use
  Company Number: US-GLAXOSMITHKLINE-US2017163648

PATIENT
  Age: 53 Year
  Sex: Female

DRUGS (16)
  1. FOSAMAX [Concomitant]
     Active Substance: ALENDRONATE SODIUM
  2. LETROZOLE. [Concomitant]
     Active Substance: LETROZOLE
  3. ADVAIR HFA [Concomitant]
     Active Substance: FLUTICASONE PROPIONATE\SALMETEROL XINAFOATE
  4. ASPIRIN. [Concomitant]
     Active Substance: ASPIRIN
  5. WELCHOL [Concomitant]
     Active Substance: COLESEVELAM HYDROCHLORIDE
  6. PREDNISONE. [Concomitant]
     Active Substance: PREDNISONE
  7. DULOXETINE. [Concomitant]
     Active Substance: DULOXETINE
  8. AMLODIPINE [Concomitant]
     Active Substance: AMLODIPINE BESYLATE
  9. BENLYSTA [Suspect]
     Active Substance: BELIMUMAB
     Indication: SYSTEMIC LUPUS ERYTHEMATOSUS
     Dosage: UNK UNK, CYC
     Route: 041
     Dates: start: 201603
  10. LUNESTA [Concomitant]
     Active Substance: ESZOPICLONE
  11. COLCRYS [Concomitant]
     Active Substance: COLCHICINE
  12. LOSARTIN [Concomitant]
     Active Substance: LOSARTAN
  13. PLAQUENIL [Concomitant]
     Active Substance: HYDROXYCHLOROQUINE SULFATE
  14. PROAIR HFA [Concomitant]
     Active Substance: ALBUTEROL SULFATE
  15. NEXIUM [Concomitant]
     Active Substance: ESOMEPRAZOLE MAGNESIUM
  16. OXYCODONE [Concomitant]
     Active Substance: OXYCODONE

REACTIONS (6)
  - Therapy cessation [Unknown]
  - Breast reconstruction [Unknown]
  - Breast conserving surgery [Unknown]
  - Invasive ductal breast carcinoma [Not Recovered/Not Resolved]
  - Breast mass [Unknown]
  - Mastectomy [Unknown]

NARRATIVE: CASE EVENT DATE: 201610
